FAERS Safety Report 18371453 (Version 3)
Quarter: 2020Q4

REPORT INFORMATION
  Report Type: Report from Study
  Country: CA (occurrence: CA)
  Receive Date: 20201012
  Receipt Date: 20201214
  Transmission Date: 20210114
  Serious: Yes (Other)
  Sender: FDA-Public Use
  Company Number: CA-JNJFOC-20200954101

PATIENT
  Age: 34 Year
  Sex: Female
  Weight: 81.8 kg

DRUGS (3)
  1. STELARA [Suspect]
     Active Substance: USTEKINUMAB
     Indication: CROHN^S DISEASE
     Route: 058
     Dates: start: 20201001, end: 20201123
  2. STELARA [Suspect]
     Active Substance: USTEKINUMAB
     Indication: CROHN^S DISEASE
     Dosage: ON 01-OCT-2020 THE PATIENT RECEIVED HER 5TH 90 MG STELARA INJECTION
     Route: 058
     Dates: start: 20200413
  3. LODALIS [Suspect]
     Active Substance: COLESEVELAM HYDROCHLORIDE
     Indication: PRODUCT USED FOR UNKNOWN INDICATION
     Route: 065

REACTIONS (9)
  - Arthralgia [Unknown]
  - Product use issue [Unknown]
  - Off label use [Unknown]
  - Therapeutic product effect incomplete [Unknown]
  - Urinary tract infection [Not Recovered/Not Resolved]
  - Crohn^s disease [Unknown]
  - Pyelocaliectasis [Unknown]
  - Renal cyst [Unknown]
  - Constipation [Unknown]

NARRATIVE: CASE EVENT DATE: 2020
